FAERS Safety Report 5273381-7 (Version None)
Quarter: 2007Q1

REPORT INFORMATION
  Report Type: 
  Country: None (occurrence: None)
  Receive Date: 20070322
  Receipt Date: 20070314
  Transmission Date: 20070707
  Serious: Yes (Hospitalization)
  Sender: FDA-Public Use
  Company Number: US-ELI_LILLY_AND_COMPANY-US200702003505

PATIENT
  Age: 82 Year

DRUGS (10)
  1. FORTEO [Suspect]
     Indication: OSTEOPOROSIS
     Dosage: UNK, UNK
     Dates: start: 20050101
  2. PLAVIX [Concomitant]
     Dates: start: 20011001
  3. TOPROL-XL [Concomitant]
     Indication: CARDIAC DISORDER
  4. SPIRONOLACTONE [Concomitant]
  5. LEVOTHYROXINE SODIUM [Concomitant]
  6. LASIX [Concomitant]
  7. RITALIN [Concomitant]
     Indication: NARCOLEPSY
  8. POTASSIUM ACETATE [Concomitant]
     Indication: MINERAL SUPPLEMENTATION
  9. ISOSORBIDE [Concomitant]
  10. PRESERVISION LUTEIN EYE VITA.+MIN.SUP.SOFTG. [Concomitant]
     Indication: EYE DISORDER
     Dates: start: 20031001

REACTIONS (4)
  - CEREBROVASCULAR ACCIDENT [None]
  - DYSGRAPHIA [None]
  - MUSCULAR WEAKNESS [None]
  - PHARMACEUTICAL PRODUCT COMPLAINT [None]
